FAERS Safety Report 4287383-0 (Version None)
Quarter: 2004Q1

REPORT INFORMATION
  Report Type: 
  Country: None (occurrence: None)
  Receive Date: 20040209
  Receipt Date: 20030617
  Transmission Date: 20041129
  Serious: No
  Sender: FDA-Public Use
  Company Number: US-GLAXOSMITHKLINE-A0412694A

PATIENT
  Age: 54 Year
  Sex: Female

DRUGS (7)
  1. PAXIL CR [Suspect]
     Indication: PANIC DISORDER
     Route: 048
     Dates: start: 20020601
  2. LIPITOR [Concomitant]
     Dosage: 20MG PER DAY
  3. CLIMARA [Concomitant]
     Dosage: .5MG PER DAY
  4. CALCIUM [Concomitant]
  5. MULTI-VITAMIN [Concomitant]
  6. ZYRTEC [Concomitant]
  7. GLUCOSAMINE/CHONDROITIN [Concomitant]

REACTIONS (15)
  - AGITATION [None]
  - ANOREXIA [None]
  - COLD SWEAT [None]
  - CONSTIPATION [None]
  - DIARRHOEA [None]
  - DISTURBANCE IN ATTENTION [None]
  - DIZZINESS [None]
  - FEELING ABNORMAL [None]
  - HEADACHE [None]
  - HUNGER [None]
  - HYPERHIDROSIS [None]
  - INSOMNIA [None]
  - IRRITABILITY [None]
  - NAUSEA [None]
  - NERVOUSNESS [None]
